FAERS Safety Report 7292858-6 (Version None)
Quarter: 2011Q1

REPORT INFORMATION
  Report Type: 
  Country: None (occurrence: None)
  Receive Date: 20110204
  Receipt Date: 20110126
  Transmission Date: 20110831
  Serious: Yes (Life-Threatening, Hospitalization, Other)
  Sender: FDA-Public Use
  Company Number: 2009SP043064

PATIENT
  Age: 28 Year
  Sex: Female
  Weight: 90.7194 kg

DRUGS (3)
  1. NUVARING [Suspect]
     Indication: CONTRACEPTION
     Dosage: VAG
     Route: 067
     Dates: start: 20070320, end: 20081020
  2. TRAZODONE HCL [Suspect]
     Indication: INSOMNIA
     Dates: start: 20080301
  3. SEROQUEL [Suspect]
     Indication: INSOMNIA

REACTIONS (31)
  - ECONOMIC PROBLEM [None]
  - DIZZINESS [None]
  - ANGINA PECTORIS [None]
  - COSTOCHONDRITIS [None]
  - GASTRIC ULCER [None]
  - PANCREATITIS [None]
  - DEEP VEIN THROMBOSIS [None]
  - EXTRADURAL HAEMATOMA [None]
  - MUSCULAR WEAKNESS [None]
  - HAEMORRHAGIC CYST [None]
  - HYPOAESTHESIA [None]
  - PULMONARY EMBOLISM [None]
  - ABDOMINAL PAIN UPPER [None]
  - INJURY [None]
  - ANHEDONIA [None]
  - MIGRAINE [None]
  - HYPERSENSITIVITY [None]
  - VULVOVAGINAL MYCOTIC INFECTION [None]
  - PAIN [None]
  - ANXIETY [None]
  - THROMBOSIS [None]
  - OVARIAN CYST [None]
  - NAUSEA [None]
  - GASTRITIS [None]
  - STRESS [None]
  - INSOMNIA [None]
  - DEPRESSION [None]
  - CHOLELITHIASIS [None]
  - PALPITATIONS [None]
  - VAGINITIS BACTERIAL [None]
  - DRY MOUTH [None]
